FAERS Safety Report 5960327-9 (Version None)
Quarter: 2008Q4

REPORT INFORMATION
  Report Type: 
  Country: None (occurrence: None)
  Receive Date: 20081120
  Receipt Date: 20081117
  Transmission Date: 20090506
  Serious: Yes (Death, Hospitalization, Other)
  Sender: FDA-Public Use
  Company Number: US-ASTRAZENECA-2008UW12623

PATIENT
  Age: 23 Year
  Sex: Male

DRUGS (28)
  1. SEROQUEL [Suspect]
     Indication: SUSPICIOUSNESS
     Route: 048
  2. SEROQUEL [Suspect]
     Indication: AGITATION
     Route: 048
  3. SEROQUEL [Suspect]
     Indication: IRRITABILITY
     Route: 048
  4. SEROQUEL [Suspect]
     Indication: INSOMNIA
     Route: 048
  5. SEROQUEL [Suspect]
     Route: 048
     Dates: start: 20070101
  6. SEROQUEL [Suspect]
     Route: 048
     Dates: start: 20070101
  7. SEROQUEL [Suspect]
     Route: 048
     Dates: start: 20070101
  8. SEROQUEL [Suspect]
     Route: 048
     Dates: start: 20070101
  9. SEROQUEL [Suspect]
     Route: 048
  10. SEROQUEL [Suspect]
     Route: 048
  11. SEROQUEL [Suspect]
     Route: 048
  12. SEROQUEL [Suspect]
     Route: 048
  13. SEROQUEL [Suspect]
     Route: 048
  14. SEROQUEL [Suspect]
     Route: 048
  15. SEROQUEL [Suspect]
     Route: 048
  16. SEROQUEL [Suspect]
     Route: 048
  17. PAROXETINE HCL [Suspect]
  18. PAROXETINE HCL [Suspect]
  19. PAROXETINE HCL [Suspect]
  20. PAROXETINE HCL [Suspect]
  21. CLONAZEPAM [Suspect]
  22. CLONAZEPAM [Suspect]
  23. CLONAZEPAM [Suspect]
  24. VALPROIC ACID [Suspect]
     Indication: IRRITABILITY
  25. VALPROIC ACID [Suspect]
     Indication: ABNORMAL BEHAVIOUR
  26. OXCARBAZEPINE [Suspect]
  27. MIRTAZAPINE [Suspect]
  28. ESCITALOPRAM [Concomitant]

REACTIONS (15)
  - ANGER [None]
  - ANXIETY [None]
  - BIPOLAR DISORDER [None]
  - DEATH [None]
  - DIARRHOEA [None]
  - ILL-DEFINED DISORDER [None]
  - INCORRECT DOSE ADMINISTERED [None]
  - IRRITABILITY [None]
  - NIGHTMARE [None]
  - OVERDOSE [None]
  - POOR QUALITY SLEEP [None]
  - POST-TRAUMATIC STRESS DISORDER [None]
  - TEARFULNESS [None]
  - TREATMENT NONCOMPLIANCE [None]
  - TREMOR [None]
